FAERS Safety Report 8187750-9 (Version None)
Quarter: 2012Q1

REPORT INFORMATION
  Report Type: 
  Country: None (occurrence: None)
  Receive Date: 20120306
  Receipt Date: 20120301
  Transmission Date: 20120608
  Serious: Yes (Hospitalization, Other)
  Sender: FDA-Public Use
  Company Number: BE-PFIZER INC-2012054760

PATIENT
  Age: 72 Year
  Sex: Male
  Weight: 104 kg

DRUGS (8)
  1. LYRICA [Suspect]
     Indication: POLYNEUROPATHY
     Dosage: 450 MG, 1X/DAY
     Route: 048
     Dates: start: 20110301, end: 20111101
  2. LEVOTHYROXINE SODIUM [Concomitant]
     Dosage: 62.5 UG, 1X/DAY
     Route: 048
  3. PERINDOPRIL ERBUMINE [Concomitant]
     Dosage: 5 MG, 1X/DAY
     Route: 048
  4. BENERVA [Concomitant]
     Dosage: 300 MG, 1X/DAY
     Route: 048
  5. METFORMIN HCL [Concomitant]
     Dosage: 875 MG, 3X/DAY
     Route: 048
  6. FENOFIBRATE [Concomitant]
     Dosage: UNK
  7. LYRICA [Suspect]
     Indication: EPILEPSY
     Dosage: 450 MG, 1X/DAY
     Route: 048
     Dates: start: 20120110, end: 20120209
  8. ASPIRIN [Concomitant]
     Dosage: 80 MG, 1X/DAY
     Route: 048

REACTIONS (6)
  - JAUNDICE [None]
  - JAUNDICE CHOLESTATIC [None]
  - LIVER FUNCTION TEST ABNORMAL [None]
  - ABDOMINAL PAIN [None]
  - LIPASE INCREASED [None]
  - PANCREATITIS [None]
